FAERS Safety Report 9486151 (Version 3)
Quarter: 2013Q3

REPORT INFORMATION
  Report Type: Spontaneous
  Country: US (occurrence: US)
  Receive Date: 20130829
  Receipt Date: 20130920
  Transmission Date: 20140515
  Serious: No
  Sender: FDA-Public Use
  Company Number: US-009507513-1308USA011231

PATIENT
  Age: 21 Year
  Sex: Female
  Weight: 140 kg

DRUGS (1)
  1. NEXPLANON [Suspect]
     Indication: CONTRACEPTION
     Dosage: UNK
     Route: 059
     Dates: start: 20130501, end: 2013

REACTIONS (2)
  - Unintended pregnancy [Not Recovered/Not Resolved]
  - Medical device complication [Unknown]
